FAERS Safety Report 9803130 (Version 1)
Quarter: 2014Q1

REPORT INFORMATION
  Report Type: Spontaneous
  Country: US (occurrence: None)
  Receive Date: 20140106
  Receipt Date: 20140106
  Transmission Date: 20141002
  Serious: Yes (Other)
  Sender: FDA-Public Use
  Company Number: None

PATIENT
  Age: 66 Year
  Sex: Male

DRUGS (5)
  1. AFINITOR 5MG NOVARTIS [Suspect]
     Indication: MALIGNANT NEOPLASM OF ISLETS OF LANGERHANS
     Dosage: 5 MG (7 TAB/CAR) 1 TAB QD ORAL
     Route: 048
  2. WARFARIN SOD [Concomitant]
  3. FERROUS SULFATE [Concomitant]
  4. AFINITOR [Concomitant]
  5. WALGREENS STR/NDL [Concomitant]

REACTIONS (1)
  - Rash [None]
